FAERS Safety Report 13050407 (Version 1)
Quarter: 2016Q4

REPORT INFORMATION
  Report Type: Spontaneous
  Country: FR (occurrence: FR)
  Receive Date: 20161221
  Receipt Date: 20161221
  Transmission Date: 20170207
  Serious: Yes (Other)
  Sender: FDA-Public Use
  Company Number: FR-MERZ NORTH AMERICA, INC.-16MRZ-00713

PATIENT
  Sex: Female

DRUGS (1)
  1. ASCLERA [Suspect]
     Active Substance: POLIDOCANOL
     Indication: VARICOSE VEIN
     Route: 042
     Dates: start: 20140728, end: 20140728

REACTIONS (7)
  - Granuloma annulare [Unknown]
  - Raynaud^s phenomenon [Unknown]
  - Dyspepsia [Unknown]
  - Depression [Unknown]
  - Malaise [Recovered/Resolved]
  - Tachycardia [Unknown]
  - Hypertension [Unknown]
